FAERS Safety Report 9382732 (Version 2)
Quarter: 2013Q3

REPORT INFORMATION
  Report Type: Report from Study
  Country: US (occurrence: US)
  Receive Date: 20130703
  Receipt Date: 20130823
  Transmission Date: 20140515
  Serious: Yes (Hospitalization, Other)
  Sender: FDA-Public Use
  Company Number: US-ABBOTT-13P-163-1111100-00

PATIENT
  Age: 39 Year
  Sex: Female

DRUGS (10)
  1. HUMIRA [Suspect]
     Indication: CROHN^S DISEASE
     Route: 058
     Dates: start: 20130111
  2. HUMIRA [Suspect]
     Dates: start: 201307
  3. MESALAMINE [Concomitant]
     Indication: CROHN^S DISEASE
  4. ASACOL [Concomitant]
     Indication: CROHN^S DISEASE
     Route: 048
     Dates: start: 20121024, end: 20130712
  5. BUDESONIDE [Concomitant]
     Indication: CROHN^S DISEASE
     Route: 048
     Dates: start: 20121024, end: 20121210
  6. PREDNISONE [Concomitant]
     Indication: CROHN^S DISEASE
     Route: 048
  7. PREDNISONE [Concomitant]
     Route: 048
  8. PREDNISONE [Concomitant]
     Route: 048
  9. FLAGYL [Concomitant]
     Indication: CROHN^S DISEASE
     Route: 048
     Dates: start: 20121210, end: 20121217
  10. LORCET [Concomitant]
     Indication: PAIN
     Dosage: 1 EVERY 6-8 HOURS AS NEEDED
     Route: 048
     Dates: start: 20121210

REACTIONS (5)
  - Intestinal obstruction [Recovered/Resolved]
  - Dyspnoea [Not Recovered/Not Resolved]
  - Dysphonia [Not Recovered/Not Resolved]
  - Pain [Not Recovered/Not Resolved]
  - Fatigue [Not Recovered/Not Resolved]
